FAERS Safety Report 11333325 (Version 1)
Quarter: 2015Q3

REPORT INFORMATION
  Report Type: Spontaneous
  Country: US (occurrence: US)
  Receive Date: 20150803
  Receipt Date: 20150803
  Transmission Date: 20151125
  Serious: Yes (Hospitalization, Disabling, Other)
  Sender: FDA-Public Use
  Company Number: US-ELI_LILLY_AND_COMPANY-US200801003668

PATIENT
  Sex: Female

DRUGS (1)
  1. ZYPREXA [Suspect]
     Active Substance: OLANZAPINE
     Dates: start: 1998

REACTIONS (8)
  - Withdrawal syndrome [Unknown]
  - Uterine leiomyoma [Unknown]
  - Pancreatitis [Unknown]
  - Weight increased [Unknown]
  - Cardiac failure congestive [Unknown]
  - Insomnia [Unknown]
  - Malaise [Unknown]
  - Hypertension [Unknown]
